FAERS Safety Report 13244121 (Version 4)
Quarter: 2017Q2

REPORT INFORMATION
  Report Type: Spontaneous
  Country: HU (occurrence: HU)
  Receive Date: 20170217
  Receipt Date: 20170405
  Transmission Date: 20170830
  Serious: Yes (Hospitalization, Other)
  Sender: FDA-Public Use
  Company Number: HU-HIKMA PHARMACEUTICALS CO. LTD-2017HU001741

PATIENT

DRUGS (8)
  1. NEBIBETA [Concomitant]
     Active Substance: NEBIVOLOL HYDROCHLORIDE
     Dosage: 5 MG, 1X1
     Dates: start: 2015
  2. TRITACE HCT [Concomitant]
     Dosage: 5/25 MG, 2X1
     Dates: start: 2012
  3. DIAPREL [Concomitant]
     Active Substance: GLICLAZIDE
     Dosage: 60 MG, 1X1
     Dates: start: 2015
  4. INFLECTRA [Suspect]
     Active Substance: INFLIXIMAB-DYYB
     Indication: ANKYLOSING SPONDYLITIS
     Dosage: 500 MG, CYCLIC ONCE EVERY 8 WEEKS
     Route: 042
     Dates: start: 20141021, end: 20170202
  5. PROSTAMOL UNO [Concomitant]
  6. FINASTERIDE. [Concomitant]
     Active Substance: FINASTERIDE
     Dosage: 5 MG, 1X1 IN THE MORNING
     Dates: start: 2012
  7. APRANAX                            /00256201/ [Concomitant]
     Active Substance: NAPROXEN
     Dosage: 550 MG, 2X1UNK
     Dates: start: 2013
  8. ALFUZOSIN SANDOZ [Concomitant]
     Active Substance: ALFUZOSIN
     Dosage: 10 MG, 1X1 IN THE EVENING
     Dates: start: 2012

REACTIONS (12)
  - Lupus-like syndrome [Unknown]
  - Transaminases increased [Unknown]
  - Hepatic steatosis [Unknown]
  - Chills [Recovered/Resolved]
  - Abdominal pain [Unknown]
  - Gastrointestinal motility disorder [Unknown]
  - Upper respiratory tract inflammation [Unknown]
  - Bilirubin conjugated increased [Unknown]
  - Aspartate aminotransferase increased [Unknown]
  - Tremor [Recovered/Resolved]
  - White blood cell count increased [Unknown]
  - Pallor [Recovered/Resolved]

NARRATIVE: CASE EVENT DATE: 20160408
